FAERS Safety Report 8880204 (Version 1)
Quarter: 2012Q4

REPORT INFORMATION
  Report Type: 
  Country: BR (occurrence: BR)
  Receive Date: 20121101
  Receipt Date: 20121101
  Transmission Date: 20130627
  Serious: Yes (Other)
  Sender: FDA-Public Use
  Company Number: PHHY2012BR011114

PATIENT
  Sex: Female
  Weight: 74 kg

DRUGS (4)
  1. FORASEQ [Suspect]
     Indication: DYSPNOEA
  2. FRAGMIN [Concomitant]
     Indication: ANTICOAGULANT THERAPY
     Dosage: 5000 IU, 1 application daily
  3. EUTHYROX [Concomitant]
     Indication: HYPOTHYROIDISM
     Dosage: 1 DF, QD
     Dates: start: 201111
  4. VISKEN [Concomitant]
     Dosage: 1 DF, UNK
     Route: 048

REACTIONS (6)
  - Placental insufficiency [Recovered/Resolved]
  - Umbilical cord around neck [Recovered/Resolved]
  - Poor weight gain neonatal [Recovered/Resolved]
  - Dyspnoea [Recovered/Resolved]
  - Insomnia [Recovered/Resolved]
  - Exposure during pregnancy [Unknown]
